FAERS Safety Report 23964116 (Version 1)
Quarter: 2024Q2

REPORT INFORMATION
  Report Type: Spontaneous
  Country: US (occurrence: None)
  Receive Date: 20240611
  Receipt Date: 20240611
  Transmission Date: 20240716
  Serious: Yes (Hospitalization)
  Sender: FDA-Public Use
  Company Number: None

PATIENT
  Age: 60 Year
  Sex: Male

DRUGS (6)
  1. SIROLIMUS [Suspect]
     Active Substance: SIROLIMUS
     Indication: Heart transplant
     Dosage: 1.5 MG DAILY ORAL
     Route: 048
     Dates: start: 20240327
  2. ENVARSUS XR [Suspect]
     Active Substance: TACROLIMUS
     Indication: Heart transplant
     Dosage: 3 MG DAILY ORAL?
     Route: 048
     Dates: start: 20240327
  3. ASPIRIN [Concomitant]
     Active Substance: ASPIRIN
     Dates: start: 20230922
  4. CALCIUM CITRATE + D3 [Concomitant]
     Dates: start: 20230922
  5. Mag-oxide 400 mg [Concomitant]
     Dates: start: 20230922
  6. PRAVASTATIN [Concomitant]
     Active Substance: PRAVASTATIN
     Dates: start: 20230922

REACTIONS (2)
  - Abdominal pain [None]
  - Gastroenteritis viral [None]

NARRATIVE: CASE EVENT DATE: 20240602
